FAERS Safety Report 8158004-1 (Version None)
Quarter: 2012Q1

REPORT INFORMATION
  Report Type: 
  Country: None (occurrence: None)
  Receive Date: 20120222
  Receipt Date: 20120215
  Transmission Date: 20120608
  Serious: Yes (Hospitalization)
  Sender: FDA-Public Use
  Company Number: PHHY2012AU013765

PATIENT
  Age: 65 Year
  Sex: Male

DRUGS (1)
  1. TEGRETOL [Suspect]
     Indication: EPILEPSY
     Dosage: 400MG/DAY
     Route: 048

REACTIONS (4)
  - GASTRIC ULCER [None]
  - BLOOD SODIUM DECREASED [None]
  - AMNESIA [None]
  - ANTICONVULSANT DRUG LEVEL INCREASED [None]
